FAERS Safety Report 8202879-4 (Version None)
Quarter: 2012Q1

REPORT INFORMATION
  Report Type: 
  Country: None (occurrence: None)
  Receive Date: 20120312
  Receipt Date: 20120312
  Transmission Date: 20120608
  Serious: Yes (Other)
  Sender: FDA-Public Use
  Company Number: None

PATIENT
  Sex: Male
  Weight: 140.61 kg

DRUGS (1)
  1. SINGULAIR [Suspect]
     Dosage: 10MG
     Route: 048
     Dates: start: 20120222, end: 20120309

REACTIONS (2)
  - SUICIDAL IDEATION [None]
  - DEPRESSION [None]
